FAERS Safety Report 6996793-X (Version None)
Quarter: 2010Q3

REPORT INFORMATION
  Report Type: 
  Country: None (occurrence: None)
  Receive Date: 20100918
  Receipt Date: 20090716
  Transmission Date: 20110219
  Serious: No
  Sender: FDA-Public Use
  Company Number: US-WYE-H10181909

PATIENT
  Age: 47 Year
  Sex: Female

DRUGS (3)
  1. EFFEXOR XR [Suspect]
     Dates: start: 20080101, end: 20090501
  2. EFFEXOR XR [Suspect]
     Dates: start: 20090501, end: 20090601
  3. EFFEXOR XR [Suspect]
     Dates: start: 20090601, end: 20090709

REACTIONS (4)
  - DRUG WITHDRAWAL SYNDROME [None]
  - HEADACHE [None]
  - NERVOUSNESS [None]
  - TIC [None]
